FAERS Safety Report 6860833-9 (Version None)
Quarter: 2010Q3

REPORT INFORMATION
  Report Type: 
  Country: None (occurrence: None)
  Receive Date: 20100720
  Receipt Date: 20100708
  Transmission Date: 20110219
  Serious: Yes (Hospitalization)
  Sender: FDA-Public Use
  Company Number: MY-JNJFOC-20100702778

PATIENT
  Sex: Male
  Weight: 62 kg

DRUGS (2)
  1. PALIPERIDONE ER [Suspect]
     Indication: SCHIZOPHRENIA
     Route: 048
  2. TRAMADOL [Suspect]
     Indication: PRODUCT USED FOR UNKNOWN INDICATION
     Route: 048

REACTIONS (3)
  - OVERDOSE [None]
  - SOMNOLENCE [None]
  - SPEECH DISORDER [None]
